FAERS Safety Report 4288779-3 (Version None)
Quarter: 2004Q1

REPORT INFORMATION
  Report Type: 
  Country: None (occurrence: None)
  Receive Date: 20040205
  Receipt Date: 20030805
  Transmission Date: 20041129
  Serious: Yes (Hospitalization)
  Sender: FDA-Public Use
  Company Number: B01200301949

PATIENT
  Age: 55 Year
  Sex: Male

DRUGS (7)
  1. (OXALIPLATIN) - SOLUTION - 85 MG/M2 [Suspect]
     Indication: OESOPHAGEAL CANCER METASTATIC
     Dosage: 85 MG/M2 Q2W, INTRAVENOUS
     Route: 042
     Dates: start: 20030708, end: 20030708
  2. FLUOROURACIL [Suspect]
     Dosage: 400 MG/M2 DAY IV BOLUS THEN 600 MG/M2/DAY IV CONTINUOUS INFUSION Q2W
     Route: 040
     Dates: start: 20030708, end: 20030708
  3. LEUCOVORIN CALCIUM [Suspect]
     Dosage: 200 MG/M2 Q2W
     Route: 042
     Dates: start: 20030708, end: 20030708
  4. DURAGESIC [Concomitant]
  5. MORPHINE SULFATE [Concomitant]
  6. SOLU-MEDROL [Concomitant]
  7. MORPHINE [Concomitant]

REACTIONS (9)
  - CONSTIPATION [None]
  - DRUG INTOLERANCE [None]
  - DYSPHAGIA [None]
  - FATIGUE [None]
  - GENERAL PHYSICAL HEALTH DETERIORATION [None]
  - NAUSEA [None]
  - OESOPHAGITIS [None]
  - RADIATION INJURY [None]
  - ULCER [None]
